FAERS Safety Report 7491080-8 (Version None)
Quarter: 2011Q2

REPORT INFORMATION
  Report Type: 
  Country: None (occurrence: None)
  Receive Date: 20110518
  Receipt Date: 20110518
  Transmission Date: 20111010
  Serious: Yes (Hospitalization)
  Sender: FDA-Public Use
  Company Number: None

PATIENT
  Age: 20 Year
  Sex: Female
  Weight: 61.2356 kg

DRUGS (2)
  1. FLAGYL [Suspect]
     Indication: PARASITIC GASTROENTERITIS
     Dosage: 1 PILL 3X/DAILY PO
     Route: 048
     Dates: start: 20110505, end: 20110513
  2. FLAGYL [Suspect]
     Indication: GASTROINTESTINAL VIRAL INFECTION
     Dosage: 1 PILL 3X/DAILY PO
     Route: 048
     Dates: start: 20110505, end: 20110513

REACTIONS (2)
  - CHEST DISCOMFORT [None]
  - DYSPNOEA [None]
